FAERS Safety Report 5729321-7 (Version None)
Quarter: 2008Q2

REPORT INFORMATION
  Report Type: 
  Country: None (occurrence: None)
  Receive Date: 20080430
  Receipt Date: 20080211
  Transmission Date: 20081010
  Serious: No
  Sender: FDA-Public Use
  Company Number: 2008PV034198

PATIENT
  Age: 65 Year
  Sex: Female

DRUGS (5)
  1. SYMLIN [Suspect]
     Indication: TYPE 2 DIABETES MELLITUS
     Dosage: 60 MCG;BID : 180 MCG;BID;SC : 360 MCG;HS;SC
     Route: 058
     Dates: start: 20070101, end: 20070101
  2. SYMLIN [Suspect]
     Indication: TYPE 2 DIABETES MELLITUS
     Dosage: 60 MCG;BID : 180 MCG;BID;SC : 360 MCG;HS;SC
     Route: 058
     Dates: start: 20071001, end: 20070101
  3. SYMLIN [Suspect]
     Indication: TYPE 2 DIABETES MELLITUS
     Dosage: 60 MCG;BID : 180 MCG;BID;SC : 360 MCG;HS;SC
     Route: 058
     Dates: start: 20070101
  4. HUMULIN N [Concomitant]
  5. ACTOS [Concomitant]

REACTIONS (6)
  - ABDOMINAL PAIN UPPER [None]
  - DECREASED APPETITE [None]
  - DIARRHOEA [None]
  - DRUG PRESCRIBING ERROR [None]
  - FATIGUE [None]
  - NAUSEA [None]
